FAERS Safety Report 15231125 (Version 7)
Quarter: 2019Q4

REPORT INFORMATION
  Report Type: Report from Study
  Country: CA (occurrence: CA)
  Receive Date: 20180802
  Receipt Date: 20191223
  Transmission Date: 20200122
  Serious: Yes (Other)
  Sender: FDA-Public Use
  Company Number: CA-ROCHE-2132482

PATIENT
  Age: 31 Year
  Sex: Female

DRUGS (20)
  1. ISMN [Concomitant]
     Active Substance: ISOSORBIDE MONONITRATE
  2. NADOLOL. [Concomitant]
     Active Substance: NADOLOL
     Route: 065
     Dates: start: 201903
  3. RAMIPRIL. [Concomitant]
     Active Substance: RAMIPRIL
  4. ATORVASTATIN [Concomitant]
     Active Substance: ATORVASTATIN
  5. AVENTYL [Concomitant]
     Active Substance: NORTRIPTYLINE HYDROCHLORIDE
  6. NOVORAPID [Concomitant]
     Active Substance: INSULIN ASPART
  7. VICTOZA [Concomitant]
     Active Substance: LIRAGLUTIDE
     Route: 065
     Dates: start: 201910
  8. SYNTHROID [Concomitant]
     Active Substance: LEVOTHYROXINE SODIUM
  9. OCREVUS [Suspect]
     Active Substance: OCRELIZUMAB
     Indication: RELAPSING-REMITTING MULTIPLE SCLEROSIS
     Dosage: 300 MG DAY 0, DAY 14 THEN 600 MG Q6M. ;ONGOING: YES
     Route: 042
     Dates: start: 20180525
  10. TYLENOL [Concomitant]
     Active Substance: ACETAMINOPHEN
  11. CELEBREX [Concomitant]
     Active Substance: CELECOXIB
  12. TYLENOL [Concomitant]
     Active Substance: ACETAMINOPHEN
  13. SOLU-MEDROL [Suspect]
     Active Substance: METHYLPREDNISOLONE SODIUM SUCCINATE
     Indication: PREMEDICATION
     Route: 065
  14. DEXILANT [Concomitant]
     Active Substance: DEXLANSOPRAZOLE
  15. TOPAMAX [Concomitant]
     Active Substance: TOPIRAMATE
  16. ASA [Concomitant]
     Active Substance: ASPIRIN
  17. TIAZAC [DILTIAZEM HYDROCHLORIDE] [Concomitant]
  18. EZETIMIBE. [Concomitant]
     Active Substance: EZETIMIBE
  19. TRESIBA [Concomitant]
     Active Substance: INSULIN DEGLUDEC
  20. REACTINE [CETIRIZINE HYDROCHLORIDE] [Concomitant]
     Active Substance: CETIRIZINE HYDROCHLORIDE
     Route: 065

REACTIONS (9)
  - Abscess limb [Not Recovered/Not Resolved]
  - Vaginal infection [Recovering/Resolving]
  - Mouth ulceration [Recovered/Resolved]
  - Abscess limb [Recovering/Resolving]
  - Periarthritis [Recovering/Resolving]
  - Urinary tract infection [Recovered/Resolved]
  - Hyperglycaemia [Recovered/Resolved]
  - Tendonitis [Recovering/Resolving]
  - Tooth abscess [Recovered/Resolved]

NARRATIVE: CASE EVENT DATE: 20180525
